FAERS Safety Report 18698813 (Version 1)
Quarter: 2021Q1

REPORT INFORMATION
  Report Type: Spontaneous
  Country: CN (occurrence: CN)
  Receive Date: 20210105
  Receipt Date: 20210105
  Transmission Date: 20210419
  Serious: Yes (Other)
  Sender: FDA-Public Use
  Company Number: CN-ROCHE-2741246

PATIENT
  Age: 57 Year
  Sex: Male
  Weight: 58 kg

DRUGS (2)
  1. HERCEPTIN [Suspect]
     Active Substance: TRASTUZUMAB
     Indication: METASTATIC GASTRIC CANCER
     Route: 041
     Dates: start: 20201127
  2. APATINIB MESYLATE [Suspect]
     Active Substance: APATINIB
     Indication: METASTATIC GASTRIC CANCER
     Route: 048
     Dates: start: 20201126

REACTIONS (1)
  - Cytopenia [Recovering/Resolving]

NARRATIVE: CASE EVENT DATE: 20201127
